FAERS Safety Report 16856570 (Version 2)
Quarter: 2019Q4

REPORT INFORMATION
  Report Type: Spontaneous
  Country: JP (occurrence: JP)
  Receive Date: 20190926
  Receipt Date: 20191106
  Transmission Date: 20200122
  Serious: Yes (Death)
  Sender: FDA-Public Use
  Company Number: JP-UNITED THERAPEUTICS-UNT-2016-013029

PATIENT
  Age: 67 Year
  Sex: Female
  Weight: 38.4 kg

DRUGS (21)
  1. OPSUMIT [Concomitant]
     Active Substance: MACITENTAN
     Indication: SYSTEMIC LUPUS ERYTHEMATOSUS
  2. REVATIO [Concomitant]
     Active Substance: SILDENAFIL CITRATE
     Indication: PULMONARY ARTERIAL HYPERTENSION
     Dosage: 60 MG, QD (DAILY)
     Route: 048
     Dates: start: 20160509
  3. REVATIO [Concomitant]
     Active Substance: SILDENAFIL CITRATE
     Indication: SJOGREN^S SYNDROME
  4. WARFARIN [Concomitant]
     Active Substance: WARFARIN
     Indication: PULMONARY ARTERIAL HYPERTENSION
     Dosage: 1.75 MG, QD (DAILY)
     Route: 048
  5. REVATIO [Concomitant]
     Active Substance: SILDENAFIL CITRATE
     Indication: SYSTEMIC LUPUS ERYTHEMATOSUS
  6. WARFARIN [Concomitant]
     Active Substance: WARFARIN
     Indication: SYSTEMIC LUPUS ERYTHEMATOSUS
  7. CALONAL [Concomitant]
     Active Substance: ACETAMINOPHEN
     Indication: PROPHYLAXIS
     Dosage: 1200 MG, QD (DAILY)
     Route: 048
     Dates: start: 20160725, end: 20170826
  8. BERASUS LA [Concomitant]
     Active Substance: BERAPROST SODIUM
     Indication: SYSTEMIC LUPUS ERYTHEMATOSUS
  9. SPIRONOLACTONE. [Concomitant]
     Active Substance: SPIRONOLACTONE
     Indication: PRODUCT USED FOR UNKNOWN INDICATION
     Dosage: 25 MG, QD (DAILY)
     Route: 048
  10. REMODULIN [Suspect]
     Active Substance: TREPROSTINIL
     Indication: PULMONARY ARTERIAL HYPERTENSION
     Dosage: UNK UNK, CONTINUING
     Route: 058
     Dates: start: 20160722
  11. REMODULIN [Suspect]
     Active Substance: TREPROSTINIL
     Indication: SJOGREN^S SYNDROME
     Dosage: 0.0069 ?G/KG, CONTINUING
     Route: 058
  12. REMODULIN [Suspect]
     Active Substance: TREPROSTINIL
     Dosage: 0.022 ?G/KG, CONTINUING
     Route: 058
  13. WARFARIN [Concomitant]
     Active Substance: WARFARIN
     Indication: SJOGREN^S SYNDROME
  14. OPSUMIT [Concomitant]
     Active Substance: MACITENTAN
     Indication: SJOGREN^S SYNDROME
  15. OPSUMIT [Concomitant]
     Active Substance: MACITENTAN
     Indication: PULMONARY ARTERIAL HYPERTENSION
     Dosage: UNK
     Route: 048
     Dates: start: 201605
  16. BERASUS LA [Concomitant]
     Active Substance: BERAPROST SODIUM
     Indication: PULMONARY ARTERIAL HYPERTENSION
     Dosage: 360 ?G, QD (DAILY)
     Route: 048
     Dates: start: 20160515, end: 20160802
  17. DIART [Concomitant]
     Active Substance: AZOSEMIDE
     Indication: PRODUCT USED FOR UNKNOWN INDICATION
     Dosage: 15 MG, QD (DAILY)
     Route: 048
  18. K SUPPLY [Concomitant]
     Active Substance: POTASSIUM CHLORIDE
     Indication: PRODUCT USED FOR UNKNOWN INDICATION
     Dosage: 1800 MG, QD (DAILY)
     Route: 048
  19. REMODULIN [Suspect]
     Active Substance: TREPROSTINIL
     Dosage: 0.07 ?G/KG, CONTINUING
     Route: 058
  20. REMODULIN [Suspect]
     Active Substance: TREPROSTINIL
     Indication: SYSTEMIC LUPUS ERYTHEMATOSUS
     Dosage: 0.103 ?G/KG, CONTINUING
     Route: 058
  21. BERASUS LA [Concomitant]
     Active Substance: BERAPROST SODIUM
     Indication: SJOGREN^S SYNDROME

REACTIONS (8)
  - Infusion site pain [Not Recovered/Not Resolved]
  - Infusion site swelling [Unknown]
  - Flushing [Unknown]
  - Infusion site infection [Recovering/Resolving]
  - Infusion site induration [Unknown]
  - Infusion site erythema [Not Recovered/Not Resolved]
  - Infusion site haemorrhage [Unknown]
  - Ovarian cancer [Fatal]

NARRATIVE: CASE EVENT DATE: 20160728
